FAERS Safety Report 7006850-X (Version None)
Quarter: 2010Q3

REPORT INFORMATION
  Report Type: 
  Country: None (occurrence: None)
  Receive Date: 20100922
  Receipt Date: 20100917
  Transmission Date: 20110219
  Serious: No
  Sender: FDA-Public Use
  Company Number: US-BIOGENIDEC-2010BI032263

PATIENT
  Age: 45 Year
  Sex: Female

DRUGS (3)
  1. AVONEX [Suspect]
     Indication: MULTIPLE SCLEROSIS
     Route: 030
     Dates: start: 19980211, end: 20030212
  2. AVONEX [Suspect]
     Route: 030
     Dates: start: 20051123
  3. PULMICORT [Concomitant]
     Indication: ASTHMA
     Route: 055

REACTIONS (3)
  - DIZZINESS [None]
  - DYSPNOEA [None]
  - PANIC REACTION [None]
